FAERS Safety Report 16187430 (Version 1)
Quarter: 2019Q2

REPORT INFORMATION
  Report Type: Spontaneous
  Country: ES (occurrence: ES)
  Receive Date: 20190412
  Receipt Date: 20190412
  Transmission Date: 20190711
  Serious: Yes (Other)
  Sender: FDA-Public Use
  Company Number: ES-ALKEM LABORATORIES LIMITED-ES-ALKEM-2018-06067

PATIENT
  Age: 58 Year
  Sex: Female

DRUGS (4)
  1. ZONISAMIDE. [Concomitant]
     Active Substance: ZONISAMIDE
     Indication: HISTRIONIC PERSONALITY DISORDER
  2. QUETIAPINE FUMARATE. [Suspect]
     Active Substance: QUETIAPINE FUMARATE
     Indication: HISTRIONIC PERSONALITY DISORDER
  3. ZONISAMIDE. [Concomitant]
     Active Substance: ZONISAMIDE
     Indication: DEPRESSION
     Dosage: 100 MG, QD
     Route: 065
  4. QUETIAPINE FUMARATE. [Suspect]
     Active Substance: QUETIAPINE FUMARATE
     Indication: DEPRESSION
     Dosage: 600 MG, QD
     Route: 065

REACTIONS (1)
  - Paraesthesia [Recovered/Resolved]
